FAERS Safety Report 9728186 (Version 1)
Quarter: 2013Q4

REPORT INFORMATION
  Report Type: Spontaneous
  Country: ES (occurrence: ES)
  Receive Date: 20131204
  Receipt Date: 20131204
  Transmission Date: 20140711
  Serious: Yes (Other)
  Sender: FDA-Public Use
  Company Number: ES-JNJFOC-20131104797

PATIENT
  Age: 73 Year
  Sex: Female

DRUGS (5)
  1. ZALDIAR [Suspect]
     Indication: ARTHRALGIA
     Route: 048
     Dates: start: 20130930, end: 20130930
  2. PARACETAMOL [Concomitant]
     Indication: ARTHRALGIA
     Route: 048
  3. CHONDROITIN SULFATE [Concomitant]
     Indication: ARTHRALGIA
     Route: 048
  4. OMEPRAZOLE [Concomitant]
     Indication: PROPHYLAXIS
     Route: 048
  5. INDAPAMIDE [Concomitant]
     Indication: HYPERTENSION
     Route: 048

REACTIONS (5)
  - Tremor [Recovered/Resolved]
  - Dizziness [Recovered/Resolved]
  - Nausea [Recovered/Resolved]
  - Malaise [Recovered/Resolved]
  - Dry mouth [Recovered/Resolved]
